FAERS Safety Report 5869084-8 (Version None)
Quarter: 2008Q3

REPORT INFORMATION
  Report Type: 
  Country: None (occurrence: None)
  Receive Date: 20080903
  Receipt Date: 20080826
  Transmission Date: 20090109
  Serious: Yes (Hospitalization)
  Sender: FDA-Public Use
  Company Number: AU-AVENTIS-200813675EU

PATIENT
  Age: 58 Year
  Sex: Male

DRUGS (2)
  1. RILUTEK [Suspect]
     Route: 048
     Dates: start: 20080419
  2. GLYCOPYRROLATE                     /00196201/ [Concomitant]
     Dosage: DOSE: UNK
     Route: 048

REACTIONS (3)
  - DYSPNOEA [None]
  - FALL [None]
  - SOMNOLENCE [None]
